FAERS Safety Report 13749544 (Version 1)
Quarter: 2017Q3

REPORT INFORMATION
  Report Type: Spontaneous
  Country: BR (occurrence: BR)
  Receive Date: 20170713
  Receipt Date: 20170713
  Transmission Date: 20171127
  Serious: Yes (Other)
  Sender: FDA-Public Use
  Company Number: BR-PFIZER INC-2017296089

PATIENT
  Age: 77 Year
  Sex: Female

DRUGS (2)
  1. LORAX [Suspect]
     Active Substance: LORAZEPAM
     Dosage: 3 MG, DAILY. 1 MG IN THE MORNING AND 2 MG AT NIGHT
  2. LORAX [Suspect]
     Active Substance: LORAZEPAM
     Indication: PERINATAL DEPRESSION
     Dosage: 2 MG, 3X/DAY. 2 TABLETS IN THE MORNING, 2 TABLETS IN THE AFTERNOON AND 2 TABLETS AT NIGHT

REACTIONS (4)
  - Intentional overdose [Unknown]
  - Drug dependence [Unknown]
  - Dementia Alzheimer^s type [Unknown]
  - Loss of personal independence in daily activities [Unknown]
